FAERS Safety Report 9143219 (Version 5)
Quarter: 2013Q2

REPORT INFORMATION
  Report Type: Report from Study
  Country: BR (occurrence: BR)
  Receive Date: 20130306
  Receipt Date: 20130605
  Transmission Date: 20140414
  Serious: Yes (Hospitalization)
  Sender: FDA-Public Use
  Company Number: BR-SANOFI-AVENTIS-2013SA021063

PATIENT
  Age: 79 Year
  Sex: Male
  Weight: 67.4 kg

DRUGS (12)
  1. CABAZITAXEL [Suspect]
     Indication: PROSTATE CANCER METASTATIC
     Route: 042
     Dates: start: 20121019, end: 20121019
  2. CABAZITAXEL [Suspect]
     Indication: PROSTATE CANCER METASTATIC
     Route: 042
     Dates: start: 20130204, end: 20130204
  3. PREDNISONE [Suspect]
     Indication: PROSTATE CANCER METASTATIC
     Route: 048
     Dates: start: 20121019, end: 20130225
  4. CAPTOPRIL [Concomitant]
     Route: 048
     Dates: start: 20020101, end: 20130226
  5. SPIRONOLACTONE [Concomitant]
     Route: 048
     Dates: start: 20020101
  6. MULTIVITAMINS [Concomitant]
     Indication: PROPHYLAXIS
     Route: 048
     Dates: start: 20120601
  7. HUMECTOL [Concomitant]
     Indication: PROPHYLAXIS
     Route: 048
     Dates: start: 20120401
  8. TRAMADOL [Concomitant]
     Route: 048
     Dates: start: 201204
  9. CELECOXIB [Concomitant]
     Route: 048
     Dates: start: 201204
  10. PARACETAMOL [Concomitant]
     Route: 048
     Dates: start: 201208
  11. PREDNISONA [Concomitant]
     Route: 048
     Dates: start: 201204
  12. SERTRALINE [Concomitant]
     Route: 048
     Dates: start: 20130128

REACTIONS (1)
  - Oedema peripheral [Not Recovered/Not Resolved]
